FAERS Safety Report 15453219 (Version 1)
Quarter: 2018Q4

REPORT INFORMATION
  Report Type: Spontaneous
  Country: TR (occurrence: TR)
  Receive Date: 20181001
  Receipt Date: 20181001
  Transmission Date: 20190204
  Serious: Yes (Other)
  Sender: FDA-Public Use
  Company Number: TR-IMPAX LABORATORIES, INC-2018-IPXL-03117

PATIENT
  Age: 30 Month
  Sex: Female

DRUGS (4)
  1. GLUTAMINE [Concomitant]
     Active Substance: GLUTAMINE
     Indication: PRODUCT USED FOR UNKNOWN INDICATION
     Dosage: UNK, POWDER
     Route: 048
  2. DIVALPROEX SODIUM ER [Suspect]
     Active Substance: DIVALPROEX SODIUM
     Indication: SEIZURE
     Dosage: UNK
     Route: 065
  3. VIGABATRIN. [Suspect]
     Active Substance: VIGABATRIN
     Indication: SEIZURE
     Dosage: UNK
     Route: 065
  4. NICOTINAMIDE [Concomitant]
     Active Substance: NIACINAMIDE
     Indication: PRODUCT USED FOR UNKNOWN INDICATION
     Dosage: UNK
     Route: 065

REACTIONS (4)
  - Developmental delay [Unknown]
  - Seizure [Unknown]
  - Hyperammonaemia [Unknown]
  - Pyrexia [Unknown]
